FAERS Safety Report 8000628-6 (Version None)
Quarter: 2011Q4

REPORT INFORMATION
  Report Type: 
  Country: None (occurrence: None)
  Receive Date: 20111216
  Receipt Date: 20111206
  Transmission Date: 20120403
  Serious: Yes (Other)
  Sender: FDA-Public Use
  Company Number: WAES 1103USA00157

PATIENT
  Age: 53 Year
  Sex: Male

DRUGS (7)
  1. PLACEBO [Suspect]
     Indication: ACUTE CORONARY SYNDROME
     Dosage: PO
     Route: 048
     Dates: start: 20091105
  2. ENALAPRIL MALEATE [Concomitant]
  3. VYTORIN [Suspect]
     Indication: ACUTE CORONARY SYNDROME
     Dosage: 10-40MG/DAILY PO
     Route: 048
     Dates: start: 20091105
  4. ATENOLOL [Concomitant]
  5. PLACEBO [Suspect]
     Indication: ACUTE CORONARY SYNDROME
     Dosage: PO
     Route: 048
     Dates: start: 20091105
  6. METFORMIN HCL [Concomitant]
  7. ASPIRIN [Concomitant]

REACTIONS (2)
  - COLONIC POLYP [None]
  - NEOPLASM MALIGNANT [None]
